FAERS Safety Report 13660120 (Version 1)
Quarter: 2017Q2

REPORT INFORMATION
  Report Type: Spontaneous
  Country: SA (occurrence: SA)
  Receive Date: 20170616
  Receipt Date: 20170616
  Transmission Date: 20170830
  Serious: Yes (Death)
  Sender: FDA-Public Use
  Company Number: SA-SA-2017SA106400

PATIENT
  Age: 11 Month
  Sex: Female
  Weight: 9.2 kg

DRUGS (1)
  1. CEREZYME [Suspect]
     Active Substance: IMIGLUCERASE
     Indication: GAUCHER^S DISEASE TYPE I
     Dosage: 1.5 VIALS
     Route: 041
     Dates: start: 20161101, end: 20170430

REACTIONS (1)
  - Apnoeic attack [Fatal]

NARRATIVE: CASE EVENT DATE: 20170430
